FAERS Safety Report 20911497 (Version 2)
Quarter: 2022Q3

REPORT INFORMATION
  Report Type: Report from Study
  Country: IL (occurrence: IL)
  Receive Date: 20220603
  Receipt Date: 20220715
  Transmission Date: 20221027
  Serious: Yes (Hospitalization, Other)
  Sender: FDA-Public Use
  Company Number: IL-ABBVIE-22K-082-4419703-00

PATIENT
  Age: 73 Year
  Sex: Male
  Weight: 93 kg

DRUGS (16)
  1. VENETOCLAX [Suspect]
     Active Substance: VENETOCLAX
     Indication: Acute myeloid leukaemia
     Dosage: 100 MG, RAMP UP
     Route: 048
     Dates: start: 20220331, end: 20220331
  2. VENETOCLAX [Suspect]
     Active Substance: VENETOCLAX
     Dosage: 200 MG, RAMP UP
     Route: 048
     Dates: start: 20220401, end: 20220401
  3. VENETOCLAX [Suspect]
     Active Substance: VENETOCLAX
     Dosage: 400 MG, DOSE REDUCTION, CONCOMITANT USE OF POSACONAZOLE
     Route: 048
     Dates: start: 20220402, end: 20220422
  4. VENETOCLAX [Suspect]
     Active Substance: VENETOCLAX
     Dosage: 100 MG, INTERRUPTION, COUNT RECOVERY (ANC, PLATELETS OR HEMOGLOBIN)
     Route: 048
     Dates: start: 20220423, end: 20220424
  5. VENETOCLAX [Suspect]
     Active Substance: VENETOCLAX
     Route: 048
     Dates: start: 20220529, end: 20220612
  6. VENETOCLAX [Suspect]
     Active Substance: VENETOCLAX
     Route: 048
     Dates: start: 20220626, end: 20220710
  7. AZACITIDINE [Suspect]
     Active Substance: AZACITIDINE
     Indication: Product used for unknown indication
     Dosage: CYCLE 1
     Route: 065
     Dates: start: 20220331, end: 20220406
  8. AZACITIDINE [Suspect]
     Active Substance: AZACITIDINE
     Dosage: CYCLE 2
     Route: 065
     Dates: start: 20220518, end: 20220604
  9. AZACITIDINE [Suspect]
     Active Substance: AZACITIDINE
     Dosage: CYCLE 2
     Route: 065
     Dates: start: 20220518, end: 20220604
  10. AZACITIDINE [Suspect]
     Active Substance: AZACITIDINE
     Dosage: CYCLE 3
     Route: 065
     Dates: start: 20220626, end: 20220630
  11. PIPERACILLIN SODIUM\TAZOBACTAM SODIUM [Concomitant]
     Active Substance: PIPERACILLIN SODIUM\TAZOBACTAM SODIUM
     Indication: Antibiotic prophylaxis
     Dates: start: 20220329, end: 20220405
  12. PIPERACILLIN SODIUM\TAZOBACTAM SODIUM [Concomitant]
     Active Substance: PIPERACILLIN SODIUM\TAZOBACTAM SODIUM
     Dates: start: 20220407
  13. PIPERACILLIN SODIUM\TAZOBACTAM SODIUM [Concomitant]
     Active Substance: PIPERACILLIN SODIUM\TAZOBACTAM SODIUM
     Dates: start: 20220519
  14. AMIKACIN [Concomitant]
     Active Substance: AMIKACIN
     Indication: Antibiotic prophylaxis
     Dates: start: 20220407, end: 20220410
  15. BROTIZOLAM [Concomitant]
     Active Substance: BROTIZOLAM
     Indication: Sedation
     Dates: start: 20220515
  16. LORAZEPAM [Concomitant]
     Active Substance: LORAZEPAM
     Indication: Nervous system disorder
     Dates: start: 20220515, end: 20220519

REACTIONS (12)
  - Pancytopenia [Recovering/Resolving]
  - Neutropenia [Recovered/Resolved]
  - Pneumocystis jirovecii pneumonia [Recovering/Resolving]
  - Epididymitis [Not Recovered/Not Resolved]
  - Decubitus ulcer [Recovering/Resolving]
  - Hypophosphataemia [Recovered/Resolved]
  - Oedema [Recovered/Resolved]
  - Tumour lysis syndrome [Recovered/Resolved]
  - Pyrexia [Recovered/Resolved]
  - Pneumonia [Recovering/Resolving]
  - Diarrhoea [Recovered/Resolved]
  - Pyrexia [Recovered/Resolved]

NARRATIVE: CASE EVENT DATE: 20220331
